FAERS Safety Report 5206681-7 (Version None)
Quarter: 2007Q1

REPORT INFORMATION
  Report Type: 
  Country: None (occurrence: None)
  Receive Date: 20070109
  Receipt Date: 20061225
  Transmission Date: 20070707
  Serious: Yes (Hospitalization)
  Sender: FDA-Public Use
  Company Number: GXKR2006JP08493

PATIENT
  Age: 70 Year
  Sex: Female

DRUGS (2)
  1. AMANTADINE HCL [Suspect]
     Indication: PARKINSON'S DISEASE
     Dosage: 150 MG, QD, ORAL
     Route: 048
  2. LEVODOPA (LEVODOPA) [Concomitant]

REACTIONS (12)
  - ABASIA [None]
  - COMMUNICATION DISORDER [None]
  - DISTURBANCE IN ATTENTION [None]
  - DRUG LEVEL INCREASED [None]
  - DRUG TOXICITY [None]
  - GAIT DISTURBANCE [None]
  - HALLUCINATION, VISUAL [None]
  - MEMORY IMPAIRMENT [None]
  - MYOCLONUS [None]
  - PYREXIA [None]
  - RESTLESSNESS [None]
  - SOMNOLENCE [None]
